FAERS Safety Report 7302413-7 (Version None)
Quarter: 2011Q1

REPORT INFORMATION
  Report Type: 
  Country: None (occurrence: None)
  Receive Date: 20110218
  Receipt Date: 20110215
  Transmission Date: 20110831
  Serious: No
  Sender: FDA-Public Use
  Company Number: US-PFIZER INC-2010153395

PATIENT
  Age: 44 Year
  Sex: Female
  Weight: 90.703 kg

DRUGS (1)
  1. ADVIL PM [Suspect]
     Dosage: 2 CAPLETS ONCE DAILY
     Route: 048
     Dates: start: 20101115, end: 20101115

REACTIONS (1)
  - INSOMNIA [None]
